FAERS Safety Report 9778074 (Version 1)
Quarter: 2013Q4

REPORT INFORMATION
  Report Type: Report from Study
  Country: US (occurrence: US)
  Receive Date: 20131223
  Receipt Date: 20131223
  Transmission Date: 20140711
  Serious: Yes (Other)
  Sender: FDA-Public Use
  Company Number: US-ROCHE-1318650

PATIENT
  Age: 74 Year
  Sex: Male

DRUGS (17)
  1. AVASTIN [Suspect]
     Indication: DIABETIC RETINOPATHY
     Dosage: 1.25 MG/ML
     Route: 050
  2. AVASTIN [Suspect]
     Indication: DIABETIC RETINAL OEDEMA
  3. TRIESENCE [Concomitant]
     Dosage: IN 0.05CC; RIGHT EYE
     Route: 065
  4. CLOPIDOGREL [Concomitant]
     Route: 048
  5. DOXAZOSIN [Concomitant]
     Route: 048
  6. AZOR (UNITED STATES) [Concomitant]
     Dosage: 5-20 MG
     Route: 048
  7. ELIQUIS [Concomitant]
     Route: 048
  8. GLIMEPIRIDE [Concomitant]
     Route: 048
  9. ACETAMINOPHEN [Concomitant]
     Route: 065
  10. NOVOLOG [Concomitant]
     Dosage: 70/30-100U/ML 45UNITS
     Route: 058
  11. LISINOPRIL [Concomitant]
     Route: 048
  12. CHLORTHALIDONE [Concomitant]
     Route: 048
  13. RANEXA [Concomitant]
     Dosage: EXTENDED RELEASE, 1/2 TABLET TWICE DAILY
     Route: 065
  14. HYDROCODONE/ACETAMINOPHEN [Concomitant]
     Dosage: 5/325 MG
     Route: 048
  15. FENOFIBRATE [Concomitant]
     Route: 048
  16. SIMVASTATIN [Concomitant]
     Route: 048
  17. CARVEDILOL [Concomitant]
     Route: 048

REACTIONS (8)
  - Retinal artery embolism [Unknown]
  - Cataract cortical [Unknown]
  - Eye haemorrhage [Unknown]
  - Retinal aneurysm [Unknown]
  - Retinal haemorrhage [Unknown]
  - Retinal haemorrhage [Unknown]
  - Visual acuity reduced [Unknown]
  - Retinal haemorrhage [Unknown]
